FAERS Safety Report 24637240 (Version 2)
Quarter: 2024Q4

REPORT INFORMATION
  Report Type: Spontaneous
  Country: US (occurrence: US)
  Receive Date: 20241119
  Receipt Date: 20241125
  Transmission Date: 20250114
  Serious: Yes (Other)
  Sender: PFIZER
  Company Number: US-PFIZER INC-202400301092

PATIENT
  Sex: Female

DRUGS (2)
  1. SOLU-MEDROL [Suspect]
     Active Substance: METHYLPREDNISOLONE SODIUM SUCCINATE
     Indication: Drug hypersensitivity
     Dosage: UNK
     Route: 042
     Dates: start: 202410
  2. MONOFERRIC [Concomitant]
     Active Substance: FERRIC DERISOMALTOSE

REACTIONS (2)
  - Platelet count decreased [Unknown]
  - Condition aggravated [Unknown]

NARRATIVE: CASE EVENT DATE: 20241101
